FAERS Safety Report 11857832 (Version 1)
Quarter: 2015Q4

REPORT INFORMATION
  Report Type: Report from Study
  Country: CA (occurrence: CA)
  Receive Date: 20151222
  Receipt Date: 20151222
  Transmission Date: 20160305
  Serious: Yes (Hospitalization)
  Sender: FDA-Public Use
  Company Number: CA-BAYER-2015-487420

PATIENT
  Age: 77 Year
  Sex: Male

DRUGS (1)
  1. STIVARGA [Suspect]
     Active Substance: REGORAFENIB
     Indication: COLORECTAL CANCER METASTATIC
     Dosage: UNK, ONCE
     Route: 048
     Dates: start: 20151204, end: 20151209

REACTIONS (7)
  - Pyrexia [Unknown]
  - Nausea [Unknown]
  - Dehydration [Unknown]
  - Pain [None]
  - Blood count abnormal [Unknown]
  - Muscle twitching [Unknown]
  - Hallucination [Unknown]

NARRATIVE: CASE EVENT DATE: 20151207
